FAERS Safety Report 9747499 (Version 1)
Quarter: 2013Q4

REPORT INFORMATION
  Report Type: Other
  Country: US (occurrence: US)
  Receive Date: 20131212
  Receipt Date: 20131212
  Transmission Date: 20140711
  Serious: Yes (Other)
  Sender: FDA-Public Use
  Company Number: US-BRISTOL-MYERS SQUIBB COMPANY-19879899

PATIENT
  Age: 44 Year
  Sex: Female

DRUGS (7)
  1. CARBOPLATIN [Suspect]
     Indication: PLASMABLASTIC LYMPHOMA
  2. ETOPOSIDE [Suspect]
     Indication: PLASMABLASTIC LYMPHOMA
  3. IFOSFAMIDE [Suspect]
     Indication: PLASMABLASTIC LYMPHOMA
  4. CYCLOPHOSPHAMIDE [Concomitant]
     Indication: PLASMABLASTIC LYMPHOMA
  5. DOXORUBICIN [Concomitant]
     Indication: PLASMABLASTIC LYMPHOMA
  6. VINCRISTINE [Concomitant]
     Indication: PLASMABLASTIC LYMPHOMA
  7. PREDNISONE [Concomitant]
     Indication: PLASMABLASTIC LYMPHOMA

REACTIONS (2)
  - Haematotoxicity [Unknown]
  - Nephropathy toxic [Unknown]
